FAERS Safety Report 12937657 (Version 6)
Quarter: 2017Q1

REPORT INFORMATION
  Report Type: Report from Study
  Country: None (occurrence: DE)
  Receive Date: 20161114
  Receipt Date: 20170217
  Transmission Date: 20170428
  Serious: Yes (Death, Hospitalization)
  Sender: FDA-Public Use
  Company Number: DE-ABBVIE-16P-062-1778938-00

PATIENT
  Age: 73 Year
  Sex: Male
  Weight: 63 kg

DRUGS (9)
  1. CARVEDILOL. [Concomitant]
     Active Substance: CARVEDILOL
     Indication: HYPERTENSION
     Dosage: LONG-TERM
  2. AMPHOTERICINE (AMPHO-MORONAL) [Concomitant]
     Indication: PRODUCT USED FOR UNKNOWN INDICATION
     Dates: start: 20161103
  3. TORASEMID [Concomitant]
     Active Substance: TORSEMIDE
     Indication: HYPERTENSION
     Dosage: LONG-TERM
  4. FILGRASTIM [Concomitant]
     Active Substance: FILGRASTIM
     Indication: PRODUCT USED FOR UNKNOWN INDICATION
     Dates: start: 20161108
  5. ASPIRIN. [Concomitant]
     Active Substance: ASPIRIN
     Indication: PROPHYLAXIS
  6. PANTOPRAZOLE [Concomitant]
     Active Substance: PANTOPRAZOLE SODIUM
     Indication: GASTRIC PH DECREASED
     Dosage: LONG-TERM
  7. VENETOCLAX [Suspect]
     Active Substance: VENETOCLAX
     Indication: CHRONIC LYMPHOCYTIC LEUKAEMIA
     Route: 048
     Dates: start: 20161103, end: 20161107
  8. RAMIPRIL. [Concomitant]
     Active Substance: RAMIPRIL
     Indication: HYPERTENSION
     Dosage: LONG-TERM
  9. ASPIRIN. [Concomitant]
     Active Substance: ASPIRIN
     Indication: CORONARY ARTERY DISEASE

REACTIONS (20)
  - Multiple organ dysfunction syndrome [Fatal]
  - Tumour lysis syndrome [Fatal]
  - Tumour necrosis [Fatal]
  - Lymphadenopathy [Unknown]
  - Chronic lymphocytic leukaemia recurrent [Unknown]
  - Ileus [Recovering/Resolving]
  - Tumour lysis syndrome [Unknown]
  - Cardiopulmonary failure [Fatal]
  - Blood pressure decreased [Fatal]
  - Lymphocytosis [Unknown]
  - Cardiovascular insufficiency [Fatal]
  - Septic shock [Fatal]
  - Leukopenia [Unknown]
  - Abdominal pain [Recovering/Resolving]
  - Inflammatory marker increased [Unknown]
  - Ascites [Recovering/Resolving]
  - Sepsis [Fatal]
  - General physical health deterioration [Fatal]
  - Haematotoxicity [Not Recovered/Not Resolved]
  - Thrombocytopenia [Unknown]

NARRATIVE: CASE EVENT DATE: 201611
